FAERS Safety Report 4634297-X (Version None)
Quarter: 2005Q2

REPORT INFORMATION
  Report Type: 
  Country: None (occurrence: None)
  Receive Date: 20050411
  Receipt Date: 20010810
  Transmission Date: 20051028
  Serious: Yes (Life-Threatening, Hospitalization)
  Sender: FDA-Public Use
  Company Number: 2927

PATIENT
  Age: 10 Year
  Sex: Male

DRUGS (1)
  1. METOCLOPRAMIDE [Suspect]
     Indication: VOMITING
     Dosage: 30 MG; PO
     Route: 048

REACTIONS (4)
  - DRUG INEFFECTIVE [None]
  - DYSTONIA [None]
  - RESPIRATORY DISTRESS [None]
  - STRIDOR [None]
